FAERS Safety Report 4591352-0 (Version None)
Quarter: 2005Q1

REPORT INFORMATION
  Report Type: 
  Country: None (occurrence: None)
  Receive Date: 20050225
  Receipt Date: 20050218
  Transmission Date: 20050727
  Serious: Yes (Hospitalization, Other)
  Sender: FDA-Public Use
  Company Number: PHEH2005US02241

PATIENT
  Age: 74 Year
  Sex: Female

DRUGS (4)
  1. DIOVAN [Suspect]
     Indication: HYPERTENSION
     Route: 048
  2. CLONIDINE [Concomitant]
  3. NORVASC [Concomitant]
  4. DIOVAN HCT [Suspect]
     Dosage: 1 TAB QD
     Route: 048

REACTIONS (6)
  - CEREBROVASCULAR ACCIDENT [None]
  - FACIAL PALSY [None]
  - HEADACHE [None]
  - RASH [None]
  - SPEECH DISORDER [None]
  - VISION BLURRED [None]
